FAERS Safety Report 7902275-0 (Version None)
Quarter: 2011Q4

REPORT INFORMATION
  Report Type: 
  Country: None (occurrence: None)
  Receive Date: 20111108
  Receipt Date: 20111101
  Transmission Date: 20120403
  Serious: Yes (Other)
  Sender: FDA-Public Use
  Company Number: GB-TEVA-307361ISR

PATIENT
  Age: 3 Year
  Sex: Female

DRUGS (2)
  1. IBUPROFEN [Concomitant]
  2. TRIMETHOPRIM [Suspect]
     Dates: start: 20111021

REACTIONS (1)
  - EPISTAXIS [None]
